FAERS Safety Report 19306604 (Version 2)
Quarter: 2021Q2

REPORT INFORMATION
  Report Type: Report from Study
  Country: US (occurrence: US)
  Receive Date: 20210526
  Receipt Date: 20210624
  Transmission Date: 20210717
  Serious: Yes (Hospitalization)
  Sender: FDA-Public Use
  Company Number: US-JNJFOC-20210539269

PATIENT
  Age: 85 Year
  Sex: Male
  Weight: 86.4 kg

DRUGS (3)
  1. TADALAFIL. [Suspect]
     Active Substance: TADALAFIL
     Indication: PRODUCT USED FOR UNKNOWN INDICATION
     Route: 065
  2. WARFARIN [Concomitant]
     Active Substance: WARFARIN
     Indication: PRODUCT USED FOR UNKNOWN INDICATION
     Route: 065
  3. MACITENTAN [Suspect]
     Active Substance: MACITENTAN
     Indication: PULMONARY ARTERIAL HYPERTENSION
     Route: 048

REACTIONS (3)
  - Viral upper respiratory tract infection [Unknown]
  - Cardiac failure congestive [Unknown]
  - Hypotension [Unknown]

NARRATIVE: CASE EVENT DATE: 2021
